FAERS Safety Report 4627927-X (Version None)
Quarter: 2005Q2

REPORT INFORMATION
  Report Type: 
  Country: None (occurrence: None)
  Receive Date: 20050404
  Receipt Date: 20050404
  Transmission Date: 20051028
  Serious: No
  Sender: FDA-Public Use
  Company Number: None

PATIENT
  Age: 65 Year
  Sex: Male

DRUGS (2)
  1. POLYMYXIN [Suspect]
     Indication: ACINETOBACTER INFECTION
     Dosage: 900,000 UNIT Q12 HOURS INTRAVENOUS
     Route: 042
     Dates: start: 20041117, end: 20041225
  2. POLYMYXIN [Suspect]
     Indication: PNEUMONIA
     Dosage: 900,000 UNIT Q12 HOURS INTRAVENOUS
     Route: 042
     Dates: start: 20041117, end: 20041225

REACTIONS (1)
  - BLOOD CREATININE INCREASED [None]
